FAERS Safety Report 17156451 (Version 7)
Quarter: 2020Q4

REPORT INFORMATION
  Report Type: Report from Study
  Country: US (occurrence: US)
  Receive Date: 20191216
  Receipt Date: 20201023
  Transmission Date: 20210113
  Serious: Yes (Hospitalization)
  Sender: FDA-Public Use
  Company Number: US-BIOGEN-2019BI00812293

PATIENT
  Sex: Male

DRUGS (1)
  1. TYSABRI [Suspect]
     Active Substance: NATALIZUMAB
     Indication: MULTIPLE SCLEROSIS
     Route: 042
     Dates: start: 20191023

REACTIONS (10)
  - Meningitis viral [Unknown]
  - Decubitus ulcer [Unknown]
  - Multiple sclerosis relapse [Unknown]
  - Coma [Unknown]
  - Opportunistic infection [Unknown]
  - Infection [Unknown]
  - Aphasia [Unknown]
  - Asthenia [Unknown]
  - Pneumonia [Unknown]
  - Memory impairment [Unknown]
